FAERS Safety Report 9507305 (Version 1)
Quarter: 2013Q3

REPORT INFORMATION
  Report Type: Spontaneous
  Country: US (occurrence: None)
  Receive Date: 20130904
  Receipt Date: 20130904
  Transmission Date: 20140515
  Serious: Yes (Other)
  Sender: FDA-Public Use
  Company Number: 2013-002729

PATIENT
  Sex: Female

DRUGS (1)
  1. ESTRACE VAGINAL CREAM [Suspect]
     Route: 067

REACTIONS (3)
  - Suicidal ideation [None]
  - Vulval disorder [None]
  - Vulvovaginal discomfort [None]
